FAERS Safety Report 4462156-4 (Version None)
Quarter: 2004Q3

REPORT INFORMATION
  Report Type: 
  Country: None (occurrence: None)
  Receive Date: 20040929
  Receipt Date: 20040922
  Transmission Date: 20050211
  Serious: Yes (Hospitalization)
  Sender: FDA-Public Use
  Company Number: NO-MERCK-0409NOR00020

PATIENT
  Age: 85 Year
  Sex: Female

DRUGS (3)
  1. ACETAMINOPHEN AND CODEINE PHOSPHATE [Concomitant]
     Route: 065
  2. CITALOPRAM HYDROBROMIDE [Suspect]
     Route: 065
  3. VIOXX [Suspect]
     Route: 048
     Dates: end: 20040814

REACTIONS (2)
  - DUODENAL ULCER [None]
  - MELAENA [None]
